FAERS Safety Report 9714030 (Version 1)
Quarter: 2013Q4

REPORT INFORMATION
  Report Type: Spontaneous
  Country: US (occurrence: US)
  Receive Date: 20131126
  Receipt Date: 20131126
  Transmission Date: 20140711
  Serious: No
  Sender: FDA-Public Use
  Company Number: US-GILEAD-2008-0018674

PATIENT
  Sex: Female
  Weight: 99.79 kg

DRUGS (15)
  1. LETAIRIS [Suspect]
     Indication: PULMONARY ARTERIAL HYPERTENSION
     Route: 048
     Dates: start: 20081014
  2. FUROSEMIDE [Concomitant]
     Route: 048
  3. COZAAR [Concomitant]
     Route: 048
  4. ZAROXOLYN [Concomitant]
     Route: 048
  5. SYNTHROID [Concomitant]
     Route: 048
  6. LYRICA [Concomitant]
     Route: 048
  7. TRICOR [Concomitant]
     Route: 048
  8. ACTOS [Concomitant]
     Route: 048
  9. HYDROCODONE APAP [Concomitant]
     Route: 048
  10. PLAVIX [Concomitant]
     Route: 048
  11. ZETIA [Concomitant]
     Route: 048
  12. COREG [Concomitant]
     Route: 048
  13. COMPLETE MULTIVITAMIN [Concomitant]
  14. POTASSIUM CHLORIDE [Concomitant]
     Route: 048
  15. FISH OIL [Concomitant]
     Route: 048

REACTIONS (4)
  - Dizziness [None]
  - Feeling abnormal [None]
  - Dyspnoea [None]
  - Local swelling [None]
